FAERS Safety Report 8835264 (Version 2)
Quarter: 2012Q4

REPORT INFORMATION
  Report Type: 
  Country: US (occurrence: US)
  Receive Date: 20121011
  Receipt Date: 20121226
  Transmission Date: 20130627
  Serious: Yes (Death, Hospitalization)
  Sender: FDA-Public Use
  Company Number: US-JNJFOC-20121004757

PATIENT
  Sex: Female
  Weight: 144.24 kg

DRUGS (2)
  1. ORTHO EVRA [Suspect]
     Indication: AMENORRHOEA
     Route: 062
     Dates: start: 201103, end: 201110
  2. ORTHO EVRA [Suspect]
     Indication: CONTRACEPTION
     Route: 062
     Dates: start: 201103, end: 201110

REACTIONS (2)
  - Pulmonary embolism [Fatal]
  - Deep vein thrombosis [Fatal]
